FAERS Safety Report 4723518-0 (Version None)
Quarter: 2005Q3

REPORT INFORMATION
  Report Type: 
  Country: None (occurrence: None)
  Receive Date: 20050721
  Receipt Date: 20050721
  Transmission Date: 20060218
  Serious: No
  Sender: FDA-Public Use
  Company Number: None

PATIENT
  Age: 67 Year
  Sex: Male
  Weight: 61.2356 kg

DRUGS (2)
  1. APIDRA [Suspect]
     Indication: DIABETES MELLITUS INSULIN-DEPENDENT
     Dosage: 0.9 U/H CONT. INFUSION SUBCUTANEOUS
     Route: 058
  2. LANTUS [Suspect]

REACTIONS (2)
  - BLOOD GLUCOSE INCREASED [None]
  - DRUG ADMINISTRATION ERROR [None]
